FAERS Safety Report 4870711-2 (Version None)
Quarter: 2006Q1

REPORT INFORMATION
  Report Type: 
  Country: None (occurrence: None)
  Receive Date: 20060103
  Receipt Date: 20051221
  Transmission Date: 20060701
  Serious: Yes (Other)
  Sender: FDA-Public Use
  Company Number: GB-GLAXOSMITHKLINE-B0404968A

PATIENT
  Sex: Female

DRUGS (2)
  1. PAROXETINE HCL [Suspect]
     Route: 048
     Dates: start: 19970326
  2. ZOPICLONE [Concomitant]
     Dosage: 7.5MG AT NIGHT
     Route: 065

REACTIONS (7)
  - AGGRESSION [None]
  - COMPLETED SUICIDE [None]
  - DRUG WITHDRAWAL SYNDROME [None]
  - MYALGIA [None]
  - NERVOUSNESS [None]
  - PARAESTHESIA [None]
  - THINKING ABNORMAL [None]
